FAERS Safety Report 10136206 (Version 1)
Quarter: 2014Q2

REPORT INFORMATION
  Report Type: Spontaneous
  Country: CN (occurrence: CN)
  Receive Date: 20140429
  Receipt Date: 20140429
  Transmission Date: 20141212
  Serious: Yes (Other)
  Sender: FDA-Public Use
  Company Number: CN-ROCHE-1388899

PATIENT
  Age: 55 Year
  Sex: Male

DRUGS (4)
  1. PEGASYS [Suspect]
     Indication: HEPATITIS B SURFACE ANTIGEN POSITIVE
     Route: 065
     Dates: start: 201403
  2. PEGASYS [Suspect]
     Indication: HEPATITIS B E ANTIBODY POSITIVE
  3. PEGASYS [Suspect]
     Indication: HEPATITIS B CORE ANTIBODY POSITIVE
  4. ENTECAVIR [Concomitant]
     Indication: HEPATITIS B SURFACE ANTIGEN POSITIVE
     Route: 065
     Dates: end: 2013

REACTIONS (3)
  - Full blood count decreased [Not Recovered/Not Resolved]
  - Influenza like illness [Recovered/Resolved]
  - Pain [Not Recovered/Not Resolved]
